FAERS Safety Report 4985771-8 (Version None)
Quarter: 2006Q2

REPORT INFORMATION
  Report Type: 
  Country: None (occurrence: None)
  Receive Date: 20060428
  Receipt Date: 20060417
  Transmission Date: 20061013
  Serious: Yes (Other)
  Sender: FDA-Public Use
  Company Number: FR-BRISTOL-MYERS SQUIBB COMPANY-13355342

PATIENT
  Age: 46 Year
  Sex: Male

DRUGS (7)
  1. CISPLATIN [Suspect]
     Indication: TESTICULAR GERM CELL CANCER
  2. BLEOMYCIN SULFATE [Suspect]
     Indication: TESTICULAR GERM CELL CANCER
  3. ETOPOSIDE [Suspect]
     Indication: TESTICULAR GERM CELL CANCER
  4. VINBLASTINE SULFATE [Suspect]
     Indication: TESTICULAR GERM CELL CANCER
  5. PROPOFOL [Concomitant]
     Indication: ANAESTHESIA
  6. SUFENTANIL CITRATE [Concomitant]
     Indication: ANAESTHESIA
  7. ATRACURIUM BESYLATE [Concomitant]
     Indication: ANAESTHESIA

REACTIONS (1)
  - BRACHIAL PLEXUS INJURY [None]
